FAERS Safety Report 10077096 (Version 4)
Quarter: 2014Q3

REPORT INFORMATION
  Report Type: Report from Study
  Country: CA (occurrence: CA)
  Receive Date: 20140414
  Receipt Date: 20140716
  Transmission Date: 20150326
  Serious: Yes (Other)
  Sender: FDA-Public Use
  Company Number: PHHY2014CA028874

PATIENT
  Sex: Male

DRUGS (1)
  1. CLOZARIL [Suspect]
     Active Substance: CLOZAPINE
     Indication: SCHIZOPHRENIA, PARANOID TYPE
     Dosage: UNK
     Route: 048
     Dates: start: 20030721

REACTIONS (4)
  - Blood disorder [Not Recovered/Not Resolved]
  - White blood cell count decreased [Unknown]
  - Hepatitis C [Not Recovered/Not Resolved]
  - Neutrophil count decreased [Unknown]
